FAERS Safety Report 15627329 (Version 1)
Quarter: 2018Q4

REPORT INFORMATION
  Report Type: Report from Study
  Country: CA (occurrence: CA)
  Receive Date: 20181116
  Receipt Date: 20181116
  Transmission Date: 20190205
  Serious: Yes (Other)
  Sender: FDA-Public Use
  Company Number: CA-JNJFOC-20181111198

PATIENT
  Age: 35 Year
  Sex: Female
  Weight: 81.5 kg

DRUGS (3)
  1. REMICADE [Suspect]
     Active Substance: INFLIXIMAB
     Indication: CROHN^S DISEASE
     Dosage: STRENGTH = 100 MG
     Route: 042
     Dates: start: 20180324
  2. TYLENOL WITH CODEINE [Suspect]
     Active Substance: ACETAMINOPHEN\CODEINE PHOSPHATE
     Indication: WISDOM TEETH REMOVAL
     Route: 065
  3. AMOXIL [Suspect]
     Active Substance: AMOXICILLIN
     Indication: WISDOM TEETH REMOVAL
     Route: 065

REACTIONS (2)
  - Intestinal obstruction [Recovering/Resolving]
  - Wisdom teeth removal [Recovering/Resolving]

NARRATIVE: CASE EVENT DATE: 20181022
